FAERS Safety Report 18392959 (Version 1)
Quarter: 2020Q4

REPORT INFORMATION
  Report Type: Spontaneous
  Country: US (occurrence: US)
  Receive Date: 20201016
  Receipt Date: 20201016
  Transmission Date: 20210114
  Serious: Yes (Death, Other)
  Sender: FDA-Public Use
  Company Number: US-GILEAD-2020-0499377

PATIENT
  Age: 71 Year
  Sex: Male
  Weight: 88.5 kg

DRUGS (21)
  1. REMDESIVIR. [Suspect]
     Active Substance: REMDESIVIR
     Indication: COVID-19 PNEUMONIA
     Dosage: 200 MG, ONCE
     Route: 042
     Dates: start: 20200830, end: 20200830
  2. HYDROCODONE/ACETAMINOPHEN [Concomitant]
     Active Substance: ACETAMINOPHEN\HYDROCODONE
     Dosage: 1 DOSAGE FORM, Q4HR, PRN
     Route: 048
     Dates: start: 20200829, end: 20200901
  3. MUPIROCIN. [Concomitant]
     Active Substance: MUPIROCIN
     Dosage: UNK UNK, BID
     Route: 045
     Dates: start: 20200831, end: 20200905
  4. PROMETHAZINE [Concomitant]
     Active Substance: PROMETHAZINE HYDROCHLORIDE
     Dosage: 6.25 MG, Q6H PRN
     Dates: start: 20200829, end: 20200911
  5. VANCOMYCIN [Concomitant]
     Active Substance: VANCOMYCIN
     Dosage: 1500 MG, Q12H
     Route: 042
     Dates: start: 20200831, end: 20200901
  6. REMDESIVIR. [Suspect]
     Active Substance: REMDESIVIR
     Dosage: 100 MG, QD
     Route: 042
     Dates: start: 20200831, end: 20200903
  7. QUETIAPINE. [Concomitant]
     Active Substance: QUETIAPINE
     Dosage: 25 MG, QHS
     Route: 048
     Dates: start: 20200902, end: 20200903
  8. RIVAROXABAN [Concomitant]
     Active Substance: RIVAROXABAN
     Dosage: 15 MG, BID
     Route: 048
     Dates: start: 20200902, end: 20200911
  9. ACETAMINOPHEN. [Concomitant]
     Active Substance: ACETAMINOPHEN
     Dosage: 650 MG, Q6H PRN
     Route: 048
     Dates: start: 20200829, end: 20200911
  10. CLOPIDOGREL [Concomitant]
     Active Substance: CLOPIDOGREL BISULFATE
     Dosage: 75 MG, QD
     Route: 050
     Dates: start: 20200830, end: 20200911
  11. ENOXAPARIN [Concomitant]
     Active Substance: ENOXAPARIN
     Dosage: 40-80 MG, Q 12-24 HR
     Route: 058
     Dates: start: 20200830, end: 20200909
  12. THIAMINE. [Concomitant]
     Active Substance: THIAMINE
     Dosage: 100 MG, QD
     Route: 048
     Dates: start: 20200904, end: 20200911
  13. CHLORHEXIDINE [Concomitant]
     Active Substance: CHLORHEXIDINE
     Dosage: 15 ML, BID
     Dates: start: 20200830, end: 20200911
  14. DEXMEDETOMIDINE. [Concomitant]
     Active Substance: DEXMEDETOMIDINE
     Dosage: 16 MCG/HR
     Route: 042
     Dates: start: 20200831, end: 20200910
  15. MORPHINE SULFATE. [Concomitant]
     Active Substance: MORPHINE SULFATE
     Dosage: 2 MG, Q1HR
     Route: 042
     Dates: start: 20200829, end: 20200901
  16. ONDANSETRON [Concomitant]
     Active Substance: ONDANSETRON
     Dosage: 4 MG, Q6H, PRN
     Route: 042
     Dates: start: 20200829, end: 20200911
  17. PIPERACILLIN AND TAZOBACTAM [Concomitant]
     Active Substance: PIPERACILLIN SODIUM\TAZOBACTAM SODIUM
     Dosage: 4.5 MG
     Route: 042
     Dates: start: 20200829, end: 20200901
  18. ASPIRIN [ACETYLSALICYLIC ACID] [Concomitant]
     Active Substance: ASPIRIN
     Dosage: 81 MG, QD
     Route: 048
     Dates: start: 20200830, end: 20200911
  19. NITROGLYCERIN. [Concomitant]
     Active Substance: NITROGLYCERIN
     Dosage: 0.4 MG Q 5 MIN PRN
     Dates: start: 20200829, end: 20200911
  20. PANTOPRAZOLE [Concomitant]
     Active Substance: PANTOPRAZOLE
     Dosage: 40 MG, QD
     Route: 042
     Dates: start: 20200829, end: 20200909
  21. PROPOFOL. [Concomitant]
     Active Substance: PROPOFOL
     Dosage: 5-50 MCG/KG/MIN
     Route: 042
     Dates: start: 20200829, end: 20200901

REACTIONS (1)
  - Septic shock [Fatal]

NARRATIVE: CASE EVENT DATE: 20200912
